FAERS Safety Report 18484036 (Version 3)
Quarter: 2020Q4

REPORT INFORMATION
  Report Type: Spontaneous
  Country: US (occurrence: US)
  Receive Date: 20201110
  Receipt Date: 20201221
  Transmission Date: 20210114
  Serious: Yes (Death, Life-Threatening, Hospitalization, Other)
  Sender: FDA-Public Use
  Company Number: US-AUROBINDO-AUR-APL-2020-054896

PATIENT
  Age: 44 Year
  Sex: Female
  Weight: 70.2 kg

DRUGS (2)
  1. CISPLATIN. [Suspect]
     Active Substance: CISPLATIN
     Indication: CERVIX CARCINOMA STAGE III
     Dosage: 40 MILLIGRAM/SQ. METER, CYCLICAL, 3 CYCLES
     Route: 042
  2. CARBOPLATIN. [Suspect]
     Active Substance: CARBOPLATIN
     Indication: CERVIX CARCINOMA STAGE III
     Dosage: 220 MILLIGRAM, CYCLICAL
     Route: 042
     Dates: start: 20191010

REACTIONS (14)
  - Mental status changes [Not Recovered/Not Resolved]
  - Cytopenia [Unknown]
  - Hypoglycaemia [Fatal]
  - Coagulopathy [Fatal]
  - Ventricular tachycardia [Fatal]
  - Metabolic acidosis [Fatal]
  - Deep vein thrombosis [Unknown]
  - Encephalopathy [Fatal]
  - Acute hepatic failure [Fatal]
  - Hypovolaemic shock [Fatal]
  - Cardiac arrest [Fatal]
  - Hepatitis B reactivation [Fatal]
  - Ototoxicity [Unknown]
  - Pulmonary embolism [Unknown]

NARRATIVE: CASE EVENT DATE: 2019
